FAERS Safety Report 6907153-1 (Version None)
Quarter: 2010Q3

REPORT INFORMATION
  Report Type: 
  Country: None (occurrence: None)
  Receive Date: 20100804
  Receipt Date: 20091005
  Transmission Date: 20110219
  Serious: No
  Sender: FDA-Public Use
  Company Number: US-PFIZER INC-2009259758

PATIENT
  Sex: Female
  Weight: 38 kg

DRUGS (1)
  1. CLEOCIN [Suspect]
     Indication: BACTERIAL INFECTION
     Route: 067
     Dates: start: 20090822, end: 20090823

REACTIONS (1)
  - APPLICATION SITE REACTION [None]
